FAERS Safety Report 6234498-3 (Version None)
Quarter: 2009Q2

REPORT INFORMATION
  Report Type: 
  Country: None (occurrence: None)
  Receive Date: 20090618
  Receipt Date: 20080930
  Transmission Date: 20091009
  Serious: No
  Sender: FDA-Public Use
  Company Number: US-BRISTOL-MYERS SQUIBB COMPANY-14363675

PATIENT
  Age: 88 Year
  Sex: Female

DRUGS (4)
  1. CARBIDOPA + LEVODOPA [Suspect]
     Indication: PARKINSON'S DISEASE
     Route: 048
     Dates: start: 20080601
  2. ATENOLOL [Concomitant]
  3. CLOPIDOGREL BISULFATE [Concomitant]
  4. LISINOPRIL [Concomitant]

REACTIONS (1)
  - NAUSEA [None]
